FAERS Safety Report 9550649 (Version 1)
Quarter: 2013Q3

REPORT INFORMATION
  Report Type: Spontaneous
  Country: US (occurrence: US)
  Receive Date: 20130924
  Receipt Date: 20130924
  Transmission Date: 20140515
  Serious: No
  Sender: FDA-Public Use
  Company Number: US-SANOFI-AVENTIS-2013SA011606

PATIENT
  Age: 53 Year
  Sex: Female

DRUGS (10)
  1. AUBAGIO [Suspect]
     Indication: MULTIPLE SCLEROSIS
     Route: 048
     Dates: start: 20130119
  2. BACLOFEN [Concomitant]
  3. ASPIRIN [Concomitant]
  4. CARDIZEM [Concomitant]
  5. FISH OIL [Concomitant]
  6. LEXAPRO [Concomitant]
  7. NEURONTIN [Concomitant]
  8. CALCIUM [Concomitant]
  9. IMODIUM [Concomitant]
  10. ANTACIDS [Concomitant]

REACTIONS (5)
  - Pain [Not Recovered/Not Resolved]
  - Nausea [Not Recovered/Not Resolved]
  - Alopecia [Not Recovered/Not Resolved]
  - Multiple sclerosis relapse [Recovered/Resolved]
  - Headache [Recovered/Resolved]
